FAERS Safety Report 24803123 (Version 1)
Quarter: 2025Q1

REPORT INFORMATION
  Report Type: Spontaneous
  Country: US (occurrence: US)
  Receive Date: 20250103
  Receipt Date: 20250103
  Transmission Date: 20250409
  Serious: Yes (Hospitalization)
  Sender: BOEHRINGER INGELHEIM
  Company Number: US-BoehringerIngelheim-2025-BI-000133

PATIENT
  Age: 78 Year
  Sex: Male
  Weight: 113.6 kg

DRUGS (2)
  1. JARDIANCE [Suspect]
     Active Substance: EMPAGLIFLOZIN
     Indication: Product used for unknown indication
     Dates: end: 20241126
  2. BLINDED BI 456906 [Concomitant]
     Indication: Obesity
     Dates: start: 20240614

REACTIONS (1)
  - Scrotal cellulitis [Recovered/Resolved]

NARRATIVE: CASE EVENT DATE: 20241107
